FAERS Safety Report 21504409 (Version 1)
Quarter: 2022Q4

REPORT INFORMATION
  Report Type: Spontaneous
  Country: US (occurrence: US)
  Receive Date: 20221025
  Receipt Date: 20221025
  Transmission Date: 20230113
  Serious: No
  Sender: FDA-Public Use
  Company Number: US-MYLANLABS-2022M1111549

PATIENT
  Sex: Female
  Weight: 49.9 kg

DRUGS (1)
  1. NORETHINDRONE [Suspect]
     Active Substance: NORETHINDRONE
     Indication: Contraception
     Dosage: UNK (TAKEN ONCE A DAY) QD
     Route: 065

REACTIONS (1)
  - Product dose omission issue [Unknown]
